FAERS Safety Report 7332975-5 (Version None)
Quarter: 2011Q1

REPORT INFORMATION
  Report Type: 
  Country: None (occurrence: None)
  Receive Date: 20110304
  Receipt Date: 20110125
  Transmission Date: 20110831
  Serious: Yes (Death)
  Sender: FDA-Public Use
  Company Number: US-TYCO HEALTHCARE/MALLINCKRODT-T201100379

PATIENT
  Sex: Female

DRUGS (4)
  1. DIPHENHYDRAMINE [Suspect]
     Route: 048
  2. TAPAZOLE [Suspect]
     Route: 048
  3. SIMVASTATIN [Suspect]
     Route: 048
  4. MORPHINE [Suspect]
     Route: 048

REACTIONS (2)
  - COMPLETED SUICIDE [None]
  - CARDIO-RESPIRATORY ARREST [None]
